FAERS Safety Report 26186292 (Version 1)
Quarter: 2025Q4

REPORT INFORMATION
  Report Type: Spontaneous
  Country: US (occurrence: None)
  Receive Date: 20251219
  Receipt Date: 20251219
  Transmission Date: 20260117
  Serious: Yes (Death, Other)
  Sender: FDA-CTU
  Company Number: None

PATIENT
  Age: 48 Year
  Sex: Female

DRUGS (1)
  1. LUPRON DEPOT [Suspect]
     Active Substance: LEUPROLIDE ACETATE
     Dosage: OTHER QUANTITY : UNKNOWN;?OTHER FREQUENCY : UNKNOWN;

REACTIONS (5)
  - Arthralgia [None]
  - Pain in extremity [None]
  - Asthenia [None]
  - Hypoaesthesia [None]
  - Dyspnoea [None]
